FAERS Safety Report 10742834 (Version 3)
Quarter: 2015Q1

REPORT INFORMATION
  Report Type: Spontaneous
  Country: JP (occurrence: JP)
  Receive Date: 20150127
  Receipt Date: 20150218
  Transmission Date: 20150721
  Serious: Yes (Death, Other)
  Sender: FDA-Public Use
  Company Number: JP-ALEXION PHARMACEUTICALS INC.-A201500185

PATIENT

DRUGS (4)
  1. REMODULIN [Concomitant]
     Active Substance: TREPROSTINIL
     Indication: THROMBOTIC MICROANGIOPATHY
     Dosage: UNK
     Route: 065
     Dates: start: 20150109, end: 20150119
  2. SOLIRIS [Suspect]
     Active Substance: ECULIZUMAB
     Indication: HAEMOLYTIC URAEMIC SYNDROME
     Dosage: 900 MG, SINGLE
     Route: 042
     Dates: start: 20150116, end: 20150116
  3. FK [Concomitant]
     Indication: GRAFT VERSUS HOST DISEASE
     Dosage: UNK
     Route: 065
     Dates: start: 20141224, end: 20150104
  4. PREDNISOLONE. [Concomitant]
     Active Substance: PREDNISOLONE
     Indication: GRAFT VERSUS HOST DISEASE
     Dosage: 35 MG, QD
     Route: 065
     Dates: start: 20141224, end: 20150119

REACTIONS (8)
  - Thrombotic microangiopathy [Fatal]
  - Blood bilirubin increased [Unknown]
  - Depressed level of consciousness [Unknown]
  - Platelet count decreased [Unknown]
  - Red cell fragmentation syndrome [Unknown]
  - Drug ineffective [Unknown]
  - Condition aggravated [Fatal]
  - Multi-organ failure [Fatal]

NARRATIVE: CASE EVENT DATE: 20150119
